FAERS Safety Report 7903651-2 (Version None)
Quarter: 2011Q4

REPORT INFORMATION
  Report Type: 
  Country: None (occurrence: None)
  Receive Date: 20111109
  Receipt Date: 20111107
  Transmission Date: 20120403
  Serious: Yes (Hospitalization, Other)
  Sender: FDA-Public Use
  Company Number: FR-JNJFOC-20110502750

PATIENT
  Sex: Female

DRUGS (11)
  1. PREVISCAN (FLUINDIONE) [Interacting]
     Indication: SUPERIOR VENA CAVA SYNDROME
     Route: 048
     Dates: start: 20060101, end: 20110330
  2. VOLTAREN [Concomitant]
     Route: 065
     Dates: start: 20110323, end: 20110330
  3. DEPAKENE [Concomitant]
     Route: 065
  4. URBANYL [Concomitant]
     Route: 065
  5. SINGULAIR [Concomitant]
     Route: 065
  6. VICTAN [Concomitant]
     Route: 065
  7. BECLOMETHASONE W/FENOTEROL [Interacting]
     Indication: ASTHMA
     Route: 055
     Dates: start: 20050101
  8. CLARITIN [Concomitant]
  9. MIANSERIN [Concomitant]
     Route: 065
  10. ACETAMINOPHEN AND TRAMADOL HCL [Suspect]
     Indication: PAIN
     Route: 048
     Dates: start: 20110323
  11. TEGRETOL [Interacting]
     Indication: EPILEPSY
     Route: 048
     Dates: start: 19800101

REACTIONS (4)
  - HAEMATURIA [None]
  - DRUG INTERACTION [None]
  - INTERNATIONAL NORMALISED RATIO INCREASED [None]
  - GINGIVAL BLEEDING [None]
